FAERS Safety Report 24817273 (Version 2)
Quarter: 2025Q1

REPORT INFORMATION
  Report Type: Report from Study
  Country: US (occurrence: US)
  Receive Date: 20250108
  Receipt Date: 20250203
  Transmission Date: 20250409
  Serious: Yes (Hospitalization, Other)
  Sender: ALEXION PHARMACEUTICALS
  Company Number: US-AstraZeneca-CH-00778240A

PATIENT

DRUGS (1)
  1. ULTOMIRIS [Suspect]
     Active Substance: RAVULIZUMAB-CWVZ
     Indication: Myasthenia gravis
     Route: 065

REACTIONS (16)
  - Pulmonary embolism [Unknown]
  - Thrombosis [Unknown]
  - Drug ineffective [Unknown]
  - Asthenia [Unknown]
  - Bladder disorder [Not Recovered/Not Resolved]
  - Fall [Unknown]
  - Fatigue [Unknown]
  - Gait disturbance [Unknown]
  - Irritability [Unknown]
  - Haemoglobin decreased [Unknown]
  - Vitamin B complex deficiency [Unknown]
  - Paraesthesia [Unknown]
  - Dyspnoea [Unknown]
  - Muscular weakness [Unknown]
  - Burning sensation [Unknown]
  - Obsessive-compulsive disorder [Unknown]
